FAERS Safety Report 8464588-6 (Version None)
Quarter: 2012Q2

REPORT INFORMATION
  Report Type: 
  Country: None (occurrence: None)
  Receive Date: 20120620
  Receipt Date: 20120620
  Transmission Date: 20120825
  Serious: No
  Sender: FDA-Public Use
  Company Number: None

PATIENT
  Age: 43 Year
  Sex: Female

DRUGS (1)
  1. COPAXONE [Suspect]
     Indication: MULTIPLE SCLEROSIS
     Dosage: 20MG DAILY SQ
     Route: 058
     Dates: start: 20100501

REACTIONS (6)
  - MUSCLE RIGIDITY [None]
  - DIZZINESS [None]
  - BACK PAIN [None]
  - HYPERHIDROSIS [None]
  - PAIN [None]
  - DYSGEUSIA [None]
